FAERS Safety Report 9643842 (Version 1)
Quarter: 2013Q4

REPORT INFORMATION
  Report Type: Spontaneous
  Country: FR (occurrence: FR)
  Receive Date: 20131024
  Receipt Date: 20131024
  Transmission Date: 20140711
  Serious: Yes (Other)
  Sender: FDA-Public Use
  Company Number: FR-TEVA-438473ISR

PATIENT
  Age: 29 Day
  Sex: Male

DRUGS (3)
  1. FUROSEMIDE [Suspect]
     Indication: OEDEMA
     Dosage: .5 MG/KG DAILY;
  2. CAFFEINE [Suspect]
     Indication: NEONATAL RESPIRATORY DISTRESS SYNDROME
  3. DOXAPRAM [Suspect]
     Indication: NEONATAL RESPIRATORY DISTRESS SYNDROME
     Dosage: 30 MG/KG DAILY;
     Route: 048

REACTIONS (2)
  - Hypokalaemia [Recovered/Resolved]
  - Apnoea [Unknown]
